FAERS Safety Report 5517031-0 (Version None)
Quarter: 2007Q4

REPORT INFORMATION
  Report Type: 
  Country: None (occurrence: None)
  Receive Date: 20071114
  Receipt Date: 20070711
  Transmission Date: 20080405
  Serious: No
  Sender: FDA-Public Use
  Company Number: A0662701A

PATIENT
  Age: 47 Year
  Sex: Female

DRUGS (2)
  1. COMMIT [Suspect]
     Dates: start: 20070709, end: 20070709
  2. NICODERM CQ [Suspect]
     Dates: start: 20070709, end: 20070709

REACTIONS (7)
  - APPLICATION SITE PAIN [None]
  - APPLICATION SITE PRURITUS [None]
  - DYSPEPSIA [None]
  - HYPERSENSITIVITY [None]
  - MALAISE [None]
  - PHARMACEUTICAL PRODUCT COMPLAINT [None]
  - STOMACH DISCOMFORT [None]
